FAERS Safety Report 16297483 (Version 8)
Quarter: 2020Q2

REPORT INFORMATION
  Report Type: Spontaneous
  Country: US (occurrence: US)
  Receive Date: 20190510
  Receipt Date: 20200520
  Transmission Date: 20200713
  Serious: Yes (Other)
  Sender: FDA-Public Use
  Company Number: US-PFIZER INC-2019195190

PATIENT
  Age: 80 Year
  Sex: Male
  Weight: 113.4 kg

DRUGS (3)
  1. APIXABAN [Suspect]
     Active Substance: APIXABAN
     Dosage: UNK
     Route: 065
     Dates: start: 2018
  2. CADUET [Suspect]
     Active Substance: AMLODIPINE BESYLATE\ATORVASTATIN CALCIUM
     Indication: BLOOD CHOLESTEROL ABNORMAL
     Dosage: UNK, 1X/DAY (AMLODIPINE BESILATE-10MG, ATORVASTATIN CALCIUM-40MG)
     Route: 048
  3. CADUET [Suspect]
     Active Substance: AMLODIPINE BESYLATE\ATORVASTATIN CALCIUM
     Indication: BLOOD PRESSURE ABNORMAL
     Dosage: 1 DF, 1X/DAY(1 DOSAGE FORM, QD)
     Route: 048

REACTIONS (9)
  - Condition aggravated [Unknown]
  - Dementia [Unknown]
  - Thinking abnormal [Unknown]
  - Hypoacusis [Unknown]
  - Malaise [Unknown]
  - Body height decreased [Unknown]
  - Frustration tolerance decreased [Unknown]
  - Prostate cancer [Unknown]
  - Amnesia [Unknown]

NARRATIVE: CASE EVENT DATE: 201811
